FAERS Safety Report 9602749 (Version 1)
Quarter: 2013Q4

REPORT INFORMATION
  Report Type: Spontaneous
  Country: PT (occurrence: PT)
  Receive Date: 20131007
  Receipt Date: 20131007
  Transmission Date: 20140711
  Serious: Yes (Other)
  Sender: FDA-Public Use
  Company Number: PT-009507513-1310PRT002200

PATIENT
  Age: 57 Year
  Sex: Female

DRUGS (1)
  1. FOSAVANCE [Suspect]
     Dosage: UNK
     Route: 048
     Dates: start: 201210

REACTIONS (2)
  - Tibia fracture [Unknown]
  - Bone pain [Unknown]
